FAERS Safety Report 23516004 (Version 1)
Quarter: 2024Q1

REPORT INFORMATION
  Report Type: Spontaneous
  Country: FR (occurrence: FR)
  Receive Date: 20240213
  Receipt Date: 20240213
  Transmission Date: 20240410
  Serious: Yes (Other)
  Sender: FDA-Public Use
  Company Number: FR-CHEPLA-2024001729

PATIENT
  Age: 84 Year
  Sex: Female
  Weight: 49.5 kg

DRUGS (3)
  1. HYDROXYUREA [Suspect]
     Active Substance: HYDROXYUREA
     Indication: Neoplasm malignant
     Dosage: INCREASE THE DOSE AND TAKE TWO CAPSULES, ON MONDAYS AND THURSDAYS ?DAILY DOSE: 4 DOSAGE FORM
     Dates: start: 20240129
  2. HYDROXYUREA [Suspect]
     Active Substance: HYDROXYUREA
     Indication: Neoplasm malignant
     Dosage: DAILY DOSE: 500 MILLIGRAM
  3. HYDROXYUREA [Suspect]
     Active Substance: HYDROXYUREA
     Indication: Neoplasm malignant
     Dosage: DAILY DOSE: 10 MILLIGRAM/KG

REACTIONS (6)
  - Erythema [Unknown]
  - Skin plaque [Unknown]
  - Syncope [Unknown]
  - Myalgia [Unknown]
  - Musculoskeletal stiffness [Unknown]
  - Underdose [Unknown]

NARRATIVE: CASE EVENT DATE: 20240201
